FAERS Safety Report 4633072-X (Version None)
Quarter: 2005Q2

REPORT INFORMATION
  Report Type: 
  Country: None (occurrence: None)
  Receive Date: 20050412
  Receipt Date: 20050407
  Transmission Date: 20051028
  Serious: Yes (Other)
  Sender: FDA-Public Use
  Company Number: PHBS2005BR04945

PATIENT
  Age: 73 Year
  Sex: Male
  Weight: 95 kg

DRUGS (2)
  1. STARLIX [Suspect]
     Indication: BLOOD GLUCOSE INCREASED
     Dosage: UNK, BID
     Route: 048
     Dates: end: 20050406
  2. TEQUIN [Concomitant]
     Indication: INFECTION
     Dosage: 400 MG/DAY
     Route: 048
     Dates: start: 20050403

REACTIONS (6)
  - ANAPHYLACTIC SHOCK [None]
  - ASTHENIA [None]
  - BLOOD GLUCOSE INCREASED [None]
  - BLOOD PRESSURE DECREASED [None]
  - OXYGEN SATURATION ABNORMAL [None]
  - TREMOR [None]
